FAERS Safety Report 9138049 (Version 1)
Quarter: 2013Q1

REPORT INFORMATION
  Report Type: Spontaneous
  Country: US (occurrence: US)
  Receive Date: 20130304
  Receipt Date: 20130304
  Transmission Date: 20140127
  Serious: Yes (Death, Hospitalization)
  Sender: FDA-Public Use
  Company Number: US-ABBOTT-13P-163-1056987-00

PATIENT
  Age: 38 Year
  Sex: Female

DRUGS (5)
  1. VALPROIC ACID [Suspect]
     Indication: SCHIZOAFFECTIVE DISORDER
  2. VALPROIC ACID [Suspect]
  3. PERPHENAZINE [Concomitant]
     Indication: SCHIZOAFFECTIVE DISORDER
     Dosage: 4 MG EVERY AM, 6 MG EVERY PM
  4. CYCLOBENZAPRINE [Concomitant]
     Indication: NECK PAIN
  5. SERTRALINE [Concomitant]
     Indication: PRODUCT USED FOR UNKNOWN INDICATION

REACTIONS (2)
  - Hyperammonaemic encephalopathy [Fatal]
  - Brain oedema [Fatal]
